FAERS Safety Report 6206764-9 (Version None)
Quarter: 2009Q2

REPORT INFORMATION
  Report Type: 
  Country: None (occurrence: None)
  Receive Date: 20090528
  Receipt Date: 20090518
  Transmission Date: 20091009
  Serious: Yes (Hospitalization)
  Sender: FDA-Public Use
  Company Number: JP-BIOGENIDEC-2009BI015453

PATIENT
  Sex: Female

DRUGS (10)
  1. AVONEX [Suspect]
     Indication: MULTIPLE SCLEROSIS
     Route: 030
     Dates: start: 20090423, end: 20090423
  2. AVONEX [Suspect]
     Route: 030
     Dates: start: 20090430, end: 20090507
  3. TAKEPRON [Concomitant]
     Dates: start: 20090323, end: 20090511
  4. STOMARCON [Concomitant]
     Dates: start: 20090323, end: 20090512
  5. BERBERON [Concomitant]
     Dates: start: 20090403, end: 20090512
  6. FOSAMAC [Concomitant]
     Dates: start: 20090407, end: 20090429
  7. BAKTAR [Concomitant]
     Dates: start: 20090407, end: 20090512
  8. MAGMITT [Concomitant]
     Dates: start: 20090408, end: 20090512
  9. PURSENNID [Concomitant]
     Dates: start: 20090408, end: 20090511
  10. PREDNISOLONE [Concomitant]
     Dates: start: 20090402, end: 20090507

REACTIONS (6)
  - ALANINE AMINOTRANSFERASE INCREASED [None]
  - ASPARTATE AMINOTRANSFERASE INCREASED [None]
  - GAMMA-GLUTAMYLTRANSFERASE INCREASED [None]
  - RASH [None]
  - STOMATITIS [None]
  - WHITE BLOOD CELL COUNT DECREASED [None]
